FAERS Safety Report 14659824 (Version 1)
Quarter: 2018Q1

REPORT INFORMATION
  Report Type: Spontaneous
  Country: US (occurrence: US)
  Receive Date: 20180317
  Receipt Date: 20180317
  Transmission Date: 20180509
  Serious: Yes (Hospitalization)
  Sender: FDA-Public Use
  Company Number: None

PATIENT
  Age: 13 Year
  Sex: Male

DRUGS (7)
  1. GENOTROPIN [Suspect]
     Active Substance: SOMATROPIN
     Indication: HYPOPITUITARISM
     Dosage: 3MG 6 DAYS PER WEEK SC
     Route: 058
     Dates: start: 20170315
  2. RAVICTI [Concomitant]
     Active Substance: GLYCEROL PHENYLBUTYRATE
  3. SERTRALINE [Concomitant]
     Active Substance: SERTRALINE HYDROCHLORIDE
  4. MULTIVITAMIN [Concomitant]
     Active Substance: VITAMINS
  5. IBOPROFEN [Concomitant]
  6. LISONOPRIL [Concomitant]
  7. LASIX [Concomitant]
     Active Substance: FUROSEMIDE

REACTIONS (1)
  - Lung disorder [None]

NARRATIVE: CASE EVENT DATE: 20171219
